FAERS Safety Report 5504012-6 (Version None)
Quarter: 2007Q4

REPORT INFORMATION
  Report Type: 
  Country: None (occurrence: None)
  Receive Date: 20071101
  Receipt Date: 20071017
  Transmission Date: 20080405
  Serious: Yes (Hospitalization)
  Sender: FDA-Public Use
  Company Number: JP-ELI_LILLY_AND_COMPANY-JP200703002174

PATIENT
  Sex: Male
  Weight: 55.7 kg

DRUGS (14)
  1. PEMETREXED [Suspect]
     Indication: PLEURAL MESOTHELIOMA MALIGNANT
     Dosage: 500 MG/M2, OTHER
     Route: 042
     Dates: start: 20070227
  2. CISPLATIN [Suspect]
     Indication: PLEURAL MESOTHELIOMA MALIGNANT
     Dosage: 75 MG/M2, OTHER
     Route: 042
     Dates: start: 20070227
  3. PANVITAN [Concomitant]
     Dosage: 0.5 MG, DAILY (1/D)
     Route: 048
     Dates: start: 20070220, end: 20070820
  4. HYDROXOCOBALAMIN ACETATE [Concomitant]
     Dosage: 1 MG, UNK
     Route: 030
     Dates: start: 20070220, end: 20070220
  5. HYDROXOCOBALAMIN ACETATE [Concomitant]
     Dosage: 1 MG, UNK
     Route: 030
     Dates: start: 20070621, end: 20070220
  6. HALCION [Concomitant]
     Indication: INSOMNIA
     Dosage: 0.25 MG, DAILY (1/D)
     Route: 048
     Dates: start: 20070221
  7. NASEA [Concomitant]
     Indication: PROPHYLAXIS
     Dosage: 0.3 MG, DAILY (1/D)
     Route: 042
     Dates: start: 20070227, end: 20070404
  8. NASEA [Concomitant]
     Dosage: 0.1 MG, DAILY (1/D)
     Route: 048
     Dates: start: 20070228, end: 20070404
  9. LOXONIN [Concomitant]
     Indication: CANCER PAIN
     Dosage: 60 MG, DAILY (1/D)
     Route: 048
     Dates: start: 20070305, end: 20070310
  10. LOXONIN [Concomitant]
     Dosage: 60 MG, DAILY (1/D)
     Route: 048
     Dates: start: 20070310, end: 20070310
  11. SOLDEM 3A [Concomitant]
     Indication: PROPHYLAXIS
     Dosage: 1500 ML, UNK
     Route: 042
     Dates: start: 20070227, end: 20070301
  12. DECADRON                                /CAN/ [Concomitant]
     Indication: PROPHYLAXIS
     Dosage: 16 MG, DAILY (1/D)
     Route: 042
     Dates: start: 20070227, end: 20070303
  13. MANNITOL [Concomitant]
     Indication: PROPHYLAXIS
     Dosage: 200 UNK, UNK
     Route: 039
     Dates: start: 20070227, end: 20070227
  14. PRIMPERAN                               /SCH/ [Concomitant]
     Indication: PROPHYLAXIS
     Dosage: 10 MG, UNK
     Route: 042
     Dates: start: 20070228, end: 20070303

REACTIONS (1)
  - LOSS OF CONSCIOUSNESS [None]
